FAERS Safety Report 4799012-8 (Version None)
Quarter: 2005Q4

REPORT INFORMATION
  Report Type: 
  Country: None (occurrence: None)
  Receive Date: 20051013
  Receipt Date: 20050922
  Transmission Date: 20060501
  Serious: Yes (Death, Hospitalization)
  Sender: FDA-Public Use
  Company Number: 230001M05MEX

PATIENT
  Age: 55 Year
  Sex: Female

DRUGS (3)
  1. INTERFERON BETA (INTERFERON BETA) [Suspect]
  2. REBIF [Suspect]
  3. MITOXANTRONE [Suspect]

REACTIONS (2)
  - MULTIPLE SCLEROSIS RELAPSE [None]
  - MYELITIS TRANSVERSE [None]
